FAERS Safety Report 7152907-2 (Version None)
Quarter: 2010Q4

REPORT INFORMATION
  Report Type: 
  Country: None (occurrence: None)
  Receive Date: 20101213
  Receipt Date: 20101207
  Transmission Date: 20110411
  Serious: Yes (Hospitalization)
  Sender: FDA-Public Use
  Company Number: US-B.I. PHARMACEUTICALS,INC./RIDGEFIELD-2010-BP-13777BP

PATIENT
  Age: 77 Year
  Sex: Male

DRUGS (1)
  1. MICARDIS [Suspect]
     Indication: HYPERTENSION
     Dosage: 80 MG
     Route: 048
     Dates: start: 20100101

REACTIONS (5)
  - DRUG INEFFECTIVE [None]
  - EMOTIONAL DISORDER [None]
  - HEADACHE [None]
  - HEART RATE IRREGULAR [None]
  - LOSS OF CONSCIOUSNESS [None]
